FAERS Safety Report 8008086-2 (Version None)
Quarter: 2011Q4

REPORT INFORMATION
  Report Type: 
  Country: None (occurrence: None)
  Receive Date: 20111227
  Receipt Date: 20111221
  Transmission Date: 20120403
  Serious: Yes (Death, Other)
  Sender: FDA-Public Use
  Company Number: PHHY2011US51814

PATIENT
  Sex: Male

DRUGS (4)
  1. MAGNESIUM [Concomitant]
  2. EXJADE [Suspect]
     Indication: BLOOD IRON INCREASED
     Dosage: 3000 MG, QD
     Dates: start: 20110201, end: 20110509
  3. VIDAZA [Concomitant]
     Dates: start: 20110101
  4. FOLIC ACID B12 [Concomitant]

REACTIONS (6)
  - HEPATIC ENZYME INCREASED [None]
  - DEEP VEIN THROMBOSIS [None]
  - LIVER FUNCTION TEST ABNORMAL [None]
  - MYELODYSPLASTIC SYNDROME [None]
  - BLOOD BILIRUBIN INCREASED [None]
  - BLOOD CREATININE INCREASED [None]
